FAERS Safety Report 5727499-2 (Version None)
Quarter: 2008Q2

REPORT INFORMATION
  Report Type: 
  Country: None (occurrence: None)
  Receive Date: 20080505
  Receipt Date: 20080423
  Transmission Date: 20081010
  Serious: Yes (Life-Threatening)
  Sender: FDA-Public Use
  Company Number: FR-ROCHE-560772

PATIENT
  Sex: Male

DRUGS (19)
  1. CELLCEPT [Suspect]
     Route: 065
     Dates: start: 20061030
  2. 1 SUSPECTED DRUG [Suspect]
     Dosage: DRUG: LEUCOTAC (INOLIMOMAB) FORM: INJECTABLE SOLUTION, DOSAGE: BY CYCLE.
     Route: 042
     Dates: start: 20061030, end: 20070208
  3. ZOVIRAX [Concomitant]
  4. CORTANCYL [Concomitant]
  5. CLAMOXYL [Concomitant]
  6. CLAMOXYL [Concomitant]
  7. LEDERFOLINE [Concomitant]
  8. CALCIDOSE [Concomitant]
  9. DIFFU K [Concomitant]
  10. IMOVANE [Concomitant]
  11. VFEND [Concomitant]
  12. TAZOCILLINE [Concomitant]
  13. TAZOCILLINE [Concomitant]
  14. AMIKACIN [Concomitant]
  15. CIPROFLOXACIN HCL [Concomitant]
  16. FORTUM [Concomitant]
  17. TIENAM [Concomitant]
  18. TIENAM [Concomitant]
  19. AMBISOME [Concomitant]

REACTIONS (1)
  - ENCEPHALITIS [None]
